FAERS Safety Report 25897760 (Version 1)
Quarter: 2025Q4

REPORT INFORMATION
  Report Type: Spontaneous
  Country: US (occurrence: US)
  Receive Date: 20251008
  Receipt Date: 20251008
  Transmission Date: 20260118
  Serious: No
  Sender: PFIZER
  Company Number: US-PFIZER INC-202500198213

PATIENT
  Age: 84 Year
  Sex: Female

DRUGS (1)
  1. IBRANCE [Suspect]
     Active Substance: PALBOCICLIB
     Dosage: 125 MG, CYCLIC, TAKE 1 TABLET DAILY ON DAYS 1 THROUGH 21 OF A 28-DAY CYCLE

REACTIONS (4)
  - Hot flush [Unknown]
  - Alopecia [Unknown]
  - Acne [Unknown]
  - Rash [Unknown]
